FAERS Safety Report 19948261 (Version 2)
Quarter: 2021Q4

REPORT INFORMATION
  Report Type: Spontaneous
  Country: US (occurrence: US)
  Receive Date: 20211013
  Receipt Date: 20211018
  Transmission Date: 20220303
  Serious: No
  Sender: FDA-Public Use
  Company Number: 2021A769683

PATIENT

DRUGS (1)
  1. SEROQUEL [Suspect]
     Active Substance: QUETIAPINE FUMARATE
     Route: 048

REACTIONS (4)
  - Skin discolouration [Not Recovered/Not Resolved]
  - Skin discomfort [Not Recovered/Not Resolved]
  - Skin disorder [Not Recovered/Not Resolved]
  - Anger [Not Recovered/Not Resolved]
